FAERS Safety Report 9342447 (Version 4)
Quarter: 2013Q3

REPORT INFORMATION
  Report Type: Report from Study
  Country: US (occurrence: US)
  Receive Date: 20130611
  Receipt Date: 20130906
  Transmission Date: 20140515
  Serious: No
  Sender: FDA-Public Use
  Company Number: PHEH2013US010240

PATIENT
  Sex: Male
  Weight: 91 kg

DRUGS (8)
  1. TASIGNA [Suspect]
     Indication: CHRONIC MYELOID LEUKAEMIA
     Dosage: 400 MG, BID
     Route: 048
     Dates: start: 20110512
  2. TASIGNA [Suspect]
     Dosage: 400 MG BID
     Route: 048
     Dates: start: 201210
  3. DOCUSATE SODIUM [Concomitant]
  4. METAMUCIL [Concomitant]
  5. LIPITOR [Concomitant]
  6. AMOXICILLIN [Concomitant]
  7. CRESTOR [Concomitant]
  8. VYTORIN [Concomitant]
     Indication: BLOOD CHOLESTEROL INCREASED

REACTIONS (5)
  - Anorectal discomfort [Not Recovered/Not Resolved]
  - Rectal discharge [Not Recovered/Not Resolved]
  - Faeces hard [Recovering/Resolving]
  - Constipation [Recovering/Resolving]
  - Flatulence [Recovering/Resolving]
